FAERS Safety Report 8717808 (Version 2)
Quarter: 2012Q4

REPORT INFORMATION
  Report Type: 
  Country: US (occurrence: US)
  Receive Date: 20120810
  Receipt Date: 20121015
  Transmission Date: 20130627
  Serious: Yes (Death)
  Sender: FDA-Public Use
  Company Number: US-ROCHE-1097874

PATIENT
  Sex: Male

DRUGS (3)
  1. ACTIVASE [Suspect]
     Indication: PULMONARY EMBOLISM
     Route: 050
  2. ACTIVASE [Suspect]
     Indication: CEREBROVASCULAR ACCIDENT
  3. ACTIVASE [Suspect]
     Indication: PULMONARY INFARCTION

REACTIONS (3)
  - Staphylococcal bacteraemia [Fatal]
  - Endocarditis [Fatal]
  - HIV test positive [Fatal]
